FAERS Safety Report 26024811 (Version 1)
Quarter: 2025Q4

REPORT INFORMATION
  Report Type: Other
  Country: EU (occurrence: EU)
  Receive Date: 20251111
  Receipt Date: 20251111
  Transmission Date: 20260119
  Serious: Yes (Life-Threatening)
  Sender: ZYDUS PHARM
  Company Number: None

PATIENT

DRUGS (5)
  1. TAMSULOSIN [Suspect]
     Active Substance: TAMSULOSIN
     Indication: Poisoning deliberate
     Dosage: 3.2 MILLIGRAM 1 TOTAL
     Route: 048
     Dates: start: 20250821
  2. ALPRAZOLAM [Suspect]
     Active Substance: ALPRAZOLAM
     Indication: Poisoning deliberate
     Dosage: 15 MILLIGRAM 1 TOTAL
     Route: 048
     Dates: start: 20250821
  3. BROMAZEPAM [Suspect]
     Active Substance: BROMAZEPAM
     Indication: Poisoning deliberate
     Dosage: 360 MILLIGRAM 1 TOTAL
     Route: 048
     Dates: start: 20250821
  4. ZOPICLONE [Suspect]
     Active Substance: ZOPICLONE
     Indication: Poisoning deliberate
     Dosage: 420 MILLIGRAM 1 TOTAL
     Route: 048
     Dates: start: 20250821
  5. LORAZEPAM [Suspect]
     Active Substance: LORAZEPAM
     Indication: Poisoning deliberate
     Dosage: 150 MILLIGRAM 1 TOTAL
     Route: 048
     Dates: start: 20250821

REACTIONS (2)
  - Depressed level of consciousness [Recovered/Resolved]
  - Poisoning deliberate [Recovered/Resolved]

NARRATIVE: CASE EVENT DATE: 20250821
